FAERS Safety Report 4593890-3 (Version None)
Quarter: 2005Q1

REPORT INFORMATION
  Report Type: 
  Country: None (occurrence: None)
  Receive Date: 20050301
  Receipt Date: 20040830
  Transmission Date: 20050727
  Serious: Yes (Other)
  Sender: FDA-Public Use
  Company Number: JP-MERCK-0409USA00308

PATIENT
  Age: 75 Year
  Sex: Male

DRUGS (2)
  1. PEPCID [Suspect]
     Route: 048
     Dates: start: 20040301
  2. MUCOSTA [Concomitant]
     Route: 048

REACTIONS (2)
  - ARRHYTHMIA [None]
  - DEAFNESS [None]
